FAERS Safety Report 5552511-3 (Version None)
Quarter: 2007Q4

REPORT INFORMATION
  Report Type: 
  Country: None (occurrence: None)
  Receive Date: 20071204
  Receipt Date: 20071126
  Transmission Date: 20080405
  Serious: Yes (Other)
  Sender: FDA-Public Use
  Company Number: CHPA2007US12815

PATIENT
  Age: 4 Year
  Sex: Male

DRUGS (1)
  1. TRIAMINIC COLD (NCH) (PHENYLEPHRINE) DISPERSIBLE TABLET [Suspect]
     Indication: RHINORRHOEA
     Dosage: 2. 5 MG, QD, ORAL
     Route: 048
     Dates: start: 20071112, end: 20071119

REACTIONS (2)
  - REACTION TO DRUG EXCIPIENTS [None]
  - URTICARIA [None]
